FAERS Safety Report 4368544-9 (Version None)
Quarter: 2004Q2

REPORT INFORMATION
  Report Type: 
  Country: None (occurrence: None)
  Receive Date: 20040528
  Receipt Date: 20040510
  Transmission Date: 20050107
  Serious: Yes (Hospitalization)
  Sender: FDA-Public Use
  Company Number: 6008792

PATIENT
  Age: 80 Year
  Sex: Female

DRUGS (7)
  1. CONCOR                  (BISOPROLOL FUMARATE) [Suspect]
     Indication: HYPERTENSION
     Dosage: 10,000 MG (5MG, 2 IN 1 D);ORAL
     Route: 049
  2. GLYBURIDE [Suspect]
     Indication: DIABETES MELLITUS
     Dosage: (8,75MG); ORAL
     Route: 048
  3. METFORMIN HCL [Suspect]
     Indication: DIABETES MELLITUS
     Dosage: 1700,00 MG (850 MG, 2 IN 1 D); ORAL
     Route: 048
  4. XANEF                             (ENALAPRIL MALEATE) [Suspect]
     Indication: HYPERTENSION
     Dosage: (2 IN 1D); ORAL
     Route: 048
  5. ACETYLSALICYLIC ACID SRT [Concomitant]
  6. DIGITOXIN TAB [Concomitant]
  7. LEVOTHYROXINE SODIUM [Concomitant]

REACTIONS (3)
  - BLOOD GLUCOSE INCREASED [None]
  - BLOOD PRESSURE INCREASED [None]
  - SHOCK HYPOGLYCAEMIC [None]
